FAERS Safety Report 10643624 (Version 2)
Quarter: 2015Q1

REPORT INFORMATION
  Report Type: Spontaneous
  Country: US (occurrence: US)
  Receive Date: 20141210
  Receipt Date: 20150102
  Transmission Date: 20150720
  Serious: Yes (Other)
  Sender: FDA-Public Use
  Company Number: US-TEVA-527849USA

PATIENT
  Age: 17 Year
  Sex: Female
  Weight: 88.08 kg

DRUGS (1)
  1. PARAGARD T 380A [Suspect]
     Active Substance: COPPER
     Indication: CONTRACEPTION
     Route: 015
     Dates: start: 20141029, end: 20141203

REACTIONS (5)
  - Blood prolactin increased [Unknown]
  - Device expulsion [Recovered/Resolved]
  - Breast discharge [Not Recovered/Not Resolved]
  - Dysuria [Unknown]
  - Escherichia urinary tract infection [Unknown]

NARRATIVE: CASE EVENT DATE: 20141203
